FAERS Safety Report 9132648 (Version 1)
Quarter: 2013Q1

REPORT INFORMATION
  Report Type: Spontaneous
  Country: US (occurrence: US)
  Receive Date: 20130301
  Receipt Date: 20130301
  Transmission Date: 20140127
  Serious: Yes (Other)
  Sender: FDA-Public Use
  Company Number: US-ROCHE-1194447

PATIENT
  Age: 58 Year
  Sex: Male

DRUGS (4)
  1. AVASTIN [Suspect]
     Indication: NON-SMALL CELL LUNG CANCER
     Route: 065
  2. AVASTIN [Suspect]
     Dosage: INTERRUPTED
     Route: 065
     Dates: start: 20110315
  3. AVASTIN [Suspect]
     Dosage: RESTARTED
     Route: 065
  4. PEMETREXED [Suspect]
     Indication: NON-SMALL CELL LUNG CANCER
     Route: 065

REACTIONS (5)
  - Non-small cell lung cancer [Unknown]
  - Oedema [Unknown]
  - Ascites [Unknown]
  - Peritoneal disorder [Unknown]
  - Dyspnoea [Unknown]
